FAERS Safety Report 13424443 (Version 3)
Quarter: 2017Q2

REPORT INFORMATION
  Report Type: Spontaneous
  Country: FR (occurrence: FR)
  Receive Date: 20170410
  Receipt Date: 20170425
  Transmission Date: 20170830
  Serious: Yes (Death, Hospitalization)
  Sender: FDA-Public Use
  Company Number: FR-TOLMAR, INC.-2017FR004138

PATIENT
  Sex: Male

DRUGS (5)
  1. ELIGARD [Suspect]
     Active Substance: LEUPROLIDE ACETATE
     Indication: PRODUCT USED FOR UNKNOWN INDICATION
     Dosage: 45 MG, 1 INJECTION EVERY 6 MONTHS
     Route: 065
     Dates: start: 201501
  2. XTANDI [Suspect]
     Active Substance: ENZALUTAMIDE
     Indication: PROSTATE CANCER METASTATIC
     Dosage: 2 DF, DAILY
     Route: 048
     Dates: start: 20150423
  3. DECAPEPTYL                         /00486501/ [Concomitant]
     Active Substance: GONADORELIN
  4. XTANDI [Suspect]
     Active Substance: ENZALUTAMIDE
     Indication: BONE CANCER
     Dosage: 3 DF, DAILY
     Route: 048
     Dates: end: 20170131
  5. ESTRACYT                           /00327002/ [Suspect]
     Active Substance: ESTRAMUSTINE PHOSPHATE SODIUM
     Indication: PRODUCT USED FOR UNKNOWN INDICATION
     Dosage: UNK
     Route: 065
     Dates: start: 201503

REACTIONS (5)
  - Amnesia [Unknown]
  - Restless legs syndrome [Fatal]
  - Prostatic specific antigen increased [Unknown]
  - Phlebitis [Unknown]
  - Encephalopathy [Fatal]

NARRATIVE: CASE EVENT DATE: 2015
